FAERS Safety Report 18782821 (Version 1)
Quarter: 2021Q1

REPORT INFORMATION
  Report Type: Spontaneous
  Country: DE (occurrence: DE)
  Receive Date: 20210125
  Receipt Date: 20210125
  Transmission Date: 20210419
  Serious: Yes (Death, Hospitalization)
  Sender: FDA-Public Use
  Company Number: DE-TEVA-2021-DE-1872511

PATIENT
  Age: 55 Year
  Sex: Male

DRUGS (3)
  1. MELPHALAN. [Suspect]
     Active Substance: MELPHALAN
     Indication: UVEAL MELANOMA
     Dosage: HIGH DOSE
     Route: 013
  2. HEPARIN [Concomitant]
     Active Substance: HEPARIN SODIUM
     Indication: ANTICOAGULANT THERAPY
     Route: 065
  3. MELPHALAN. [Suspect]
     Active Substance: MELPHALAN
     Indication: METASTATIC NEOPLASM

REACTIONS (5)
  - Pancytopenia [Unknown]
  - Septic shock [Fatal]
  - Neutropenia [Unknown]
  - Peritonitis bacterial [Unknown]
  - Multiple organ dysfunction syndrome [Fatal]
